FAERS Safety Report 6335248-2 (Version None)
Quarter: 2009Q3

REPORT INFORMATION
  Report Type: 
  Country: None (occurrence: None)
  Receive Date: 20090831
  Receipt Date: 20090826
  Transmission Date: 20100115
  Serious: Yes (Other)
  Sender: FDA-Public Use
  Company Number: US-MERCK-0908USA04548

PATIENT
  Sex: Male

DRUGS (1)
  1. SINGULAIR [Suspect]
     Indication: MIGRAINE
     Route: 048
     Dates: start: 20080101

REACTIONS (3)
  - DEPRESSION [None]
  - OFF LABEL USE [None]
  - SUICIDAL IDEATION [None]
